FAERS Safety Report 24779326 (Version 1)
Quarter: 2024Q4

REPORT INFORMATION
  Report Type: Spontaneous
  Country: JP (occurrence: JP)
  Receive Date: 20241226
  Receipt Date: 20241226
  Transmission Date: 20250115
  Serious: Yes (Death, Hospitalization, Other)
  Sender: ELI LILLY AND COMPANY
  Company Number: JP-ELI_LILLY_AND_COMPANY-JP202412015225

PATIENT
  Age: 75 Year
  Sex: Female

DRUGS (2)
  1. VERZENIO [Suspect]
     Active Substance: ABEMACICLIB
     Indication: Breast cancer recurrent
     Dosage: 200 MG
     Route: 048
     Dates: start: 202107, end: 202406
  2. TAMOXIFEN CITRATE [Concomitant]
     Active Substance: TAMOXIFEN CITRATE
     Indication: Breast cancer recurrent
     Dosage: 20 MG
     Dates: start: 202107

REACTIONS (6)
  - Interstitial lung disease [Fatal]
  - Osteonecrosis of jaw [Unknown]
  - Pneumonia aspiration [Unknown]
  - Suicide attempt [Unknown]
  - Intentional overdose [Unknown]
  - Malnutrition [Unknown]

NARRATIVE: CASE EVENT DATE: 20240501
